FAERS Safety Report 5819962-0 (Version None)
Quarter: 2008Q3

REPORT INFORMATION
  Report Type: 
  Country: None (occurrence: None)
  Receive Date: 20080721
  Receipt Date: 20080711
  Transmission Date: 20090109
  Serious: Yes (Hospitalization)
  Sender: FDA-Public Use
  Company Number: 2008001656

PATIENT
  Age: 51 Year
  Sex: Female

DRUGS (8)
  1. ERLOTINIB (ERLOTINIB) (TABLET) (ERLOTINIB) [Suspect]
     Indication: OVARIAN CANCER
     Dosage: 100 MG, QD, ORAL
     Route: 048
     Dates: start: 20071214, end: 20071225
  2. S-1 (TS-1) [Suspect]
     Dosage: 12.5 MG, ORAL
     Route: 048
     Dates: start: 20071214, end: 20071225
  3. GEMCITABINE [Suspect]
     Dosage: 800 MG/M2, DAYS 1 AND 8, INTRAVENOUS
     Route: 042
     Dates: start: 20071214, end: 20071228
  4. VICODIN [Concomitant]
  5. LASIX (FUROSMIDE) [Concomitant]
  6. PROZAC [Concomitant]
  7. PROTONIX [Concomitant]
  8. FEMARA [Concomitant]

REACTIONS (5)
  - CULTURE URINE POSITIVE [None]
  - FEBRILE NEUTROPENIA [None]
  - HYPERBILIRUBINAEMIA [None]
  - KLEBSIELLA INFECTION [None]
  - URINARY TRACT INFECTION [None]
